FAERS Safety Report 5375401-8 (Version None)
Quarter: 2007Q2

REPORT INFORMATION
  Report Type: 
  Country: None (occurrence: None)
  Receive Date: 20070627
  Receipt Date: 20070615
  Transmission Date: 20071010
  Serious: Yes (Hospitalization)
  Sender: FDA-Public Use
  Company Number: 20070134 /

PATIENT
  Age: 38 Year
  Sex: Female

DRUGS (2)
  1. VENOFER [Suspect]
     Indication: IRON DEFICIENCY ANAEMIA
     Dosage: 300 MG INTRAVENOUS
     Route: 042
     Dates: start: 20070310
  2. VENOFER [Suspect]
     Indication: IRON DEFICIENCY ANAEMIA
     Dosage: 200 MG INTRAVENOUS
     Route: 042
     Dates: start: 20070312

REACTIONS (9)
  - ADMINISTRATION SITE REACTION [None]
  - BLOOD CULTURE POSITIVE [None]
  - CHILLS [None]
  - CYANOSIS [None]
  - DEVICE RELATED INFECTION [None]
  - ENTEROBACTER INFECTION [None]
  - ENTEROCOCCAL INFECTION [None]
  - LYMPHANGITIS [None]
  - PYREXIA [None]
